FAERS Safety Report 4776945-X (Version None)
Quarter: 2005Q3

REPORT INFORMATION
  Report Type: 
  Country: None (occurrence: None)
  Receive Date: 20050921
  Receipt Date: 20050912
  Transmission Date: 20060218
  Serious: Yes (Other)
  Sender: FDA-Public Use
  Company Number: 217287

PATIENT
  Age: 12 Year
  Sex: Male
  Weight: 76.2 kg

DRUGS (8)
  1. XOLAIR [Suspect]
     Indication: ASTHMA
     Dosage: 300 MG, 1/MONTH, SUBCUTANEOUS
     Route: 058
     Dates: start: 20050426
  2. PROVENTIL HFA (ALBUTEROL SULFATE, ALBUTEROL) [Concomitant]
  3. XOPENEX [Concomitant]
  4. SINGULAIR [Concomitant]
  5. FLOVENT [Concomitant]
  6. FORADIL [Concomitant]
  7. PREVACID [Concomitant]
  8. ALLEGRA [Concomitant]

REACTIONS (1)
  - CARDIAC MURMUR [None]
